FAERS Safety Report 23233505 (Version 1)
Quarter: 2023Q4

REPORT INFORMATION
  Report Type: Spontaneous
  Country: IT (occurrence: IT)
  Receive Date: 20231128
  Receipt Date: 20231128
  Transmission Date: 20240110
  Serious: Yes (Death, Hospitalization, Other)
  Sender: FDA-Public Use
  Company Number: IT-SA-2023SA366412

PATIENT
  Age: 84 Year

DRUGS (3)
  1. ENOXAPARIN SODIUM [Suspect]
     Active Substance: ENOXAPARIN SODIUM
     Indication: Anticoagulant therapy
     Dosage: 6000 IU
     Dates: start: 20141225
  2. ENOXAPARIN SODIUM [Suspect]
     Active Substance: ENOXAPARIN SODIUM
     Dosage: 6000 IU 2 VIALS
     Dates: start: 20141226
  3. ENOXAPARIN SODIUM [Suspect]
     Active Substance: ENOXAPARIN SODIUM
     Dosage: 6000 IU 1 VIAL + 2000 IU 1 VIAL
     Dates: start: 20141227

REACTIONS (3)
  - Overdose [Fatal]
  - Melaena [Unknown]
  - Haematuria [Unknown]

NARRATIVE: CASE EVENT DATE: 20141201
